FAERS Safety Report 5236065-7 (Version None)
Quarter: 2007Q1

REPORT INFORMATION
  Report Type: 
  Country: None (occurrence: None)
  Receive Date: 20061208
  Receipt Date: 20060721
  Transmission Date: 20070707
  Serious: Yes (Other)
  Sender: FDA-Public Use
  Company Number: 2006UW10595

PATIENT
  Age: 71 Year
  Sex: Female
  Weight: 63.502 kg

DRUGS (7)
  1. CRESTOR [Suspect]
     Indication: BLOOD CHOLESTEROL INCREASED
     Dosage: 10 MG PO
     Route: 048
     Dates: start: 20060512
  2. COUMADIN [Concomitant]
  3. CARTIA /AU/ [Concomitant]
  4. AVAPRO [Concomitant]
  5. LANOXIN [Concomitant]
  6. ELMIRON [Concomitant]
  7. ZYRTEC [Concomitant]

REACTIONS (2)
  - EYE DISORDER [None]
  - PHOTOSENSITIVITY REACTION [None]
